FAERS Safety Report 6101620-9 (Version None)
Quarter: 2009Q1

REPORT INFORMATION
  Report Type: 
  Country: None (occurrence: None)
  Receive Date: 20090303
  Receipt Date: 20090303
  Transmission Date: 20090719
  Serious: Yes (Life-Threatening)
  Sender: FDA-Public Use
  Company Number: None

PATIENT
  Sex: Male
  Weight: 40.1 kg

DRUGS (6)
  1. THALIDOMIDE [Suspect]
     Indication: MEDULLOBLASTOMA RECURRENT
     Dosage: 300 MG QD, BID PO
     Route: 048
  2. CELEBREX [Suspect]
     Indication: MEDULLOBLASTOMA RECURRENT
     Dosage: 10 MG QD BID PO
     Route: 048
  3. FENOFIBRATE [Suspect]
     Dosage: 108 MG QD, QD PO
     Route: 048
  4. CYCLOPHOSPHAMIDE [Suspect]
     Dosage: 25 MG QD, QD PO
     Route: 048
  5. ZOFRAN [Concomitant]
  6. PREVACID [Concomitant]

REACTIONS (5)
  - LYMPHOPENIA [None]
  - NEUTROPHIL COUNT ABNORMAL [None]
  - PLATELET COUNT ABNORMAL [None]
  - THERAPEUTIC AGENT TOXICITY [None]
  - WHITE BLOOD CELL COUNT ABNORMAL [None]
